FAERS Safety Report 9866362 (Version 1)
Quarter: 2014Q1

REPORT INFORMATION
  Report Type: Other
  Country: IT (occurrence: IT)
  Receive Date: 20140203
  Receipt Date: 20140203
  Transmission Date: 20141002
  Serious: Yes (Hospitalization)
  Sender: FDA-Public Use
  Company Number: IT-SUN PHARMACEUTICAL INDUSTRIES LTD-2014SUN00184

PATIENT
  Age: 65 Year
  Sex: Female

DRUGS (3)
  1. OXALIPLATINO SUN 5 MG/ML, CONCENTRATO PER SOLUZIONE PER INFUSIONE [Suspect]
     Indication: COLON CANCER
     Dosage: UNK
     Dates: start: 20130716, end: 20130917
  2. XELODA [Suspect]
     Indication: COLON CANCER
     Dosage: 500 MG, UNK
     Route: 048
     Dates: start: 20130625, end: 20131006
  3. XELODA [Suspect]
     Dosage: 150 MG, UNK
     Route: 048
     Dates: start: 20130625, end: 20131006

REACTIONS (3)
  - Dermatitis [Not Recovered/Not Resolved]
  - Diarrhoea [Not Recovered/Not Resolved]
  - Mucosal inflammation [Not Recovered/Not Resolved]
